FAERS Safety Report 16715824 (Version 1)
Quarter: 2019Q4

REPORT INFORMATION
  Report Type: Spontaneous
  Country: US (occurrence: US)
  Receive Date: 20190817
  Receipt Date: 20190817
  Transmission Date: 20200122
  Serious: Yes (Other)
  Sender: FDA-Public Use
  Company Number: None

PATIENT
  Age: 42 Year
  Sex: Female
  Weight: 51.75 kg

DRUGS (10)
  1. RELPAX [Suspect]
     Active Substance: ELETRIPTAN HYDROBROMIDE
     Indication: MIGRAINE
     Route: 048
     Dates: start: 20170827, end: 20190816
  2. TOPIRIMATE [Concomitant]
     Active Substance: TOPIRAMATE
  3. BUPROPION. [Concomitant]
     Active Substance: BUPROPION
  4. RANITIDINE. [Concomitant]
     Active Substance: RANITIDINE
  5. PROPRANOLOL [Concomitant]
     Active Substance: PROPRANOLOL HYDROCHLORIDE
  6. PERCOCET [Concomitant]
     Active Substance: ACETAMINOPHEN\OXYCODONE HYDROCHLORIDE
  7. DULOXETINE. [Concomitant]
     Active Substance: DULOXETINE
  8. CLONAZEPAM. [Concomitant]
     Active Substance: CLONAZEPAM
  9. SUCRALFATE. [Concomitant]
     Active Substance: SUCRALFATE
  10. OMEPRAZOLE. [Concomitant]
     Active Substance: OMEPRAZOLE

REACTIONS (4)
  - Recalled product administered [None]
  - Dyspepsia [None]
  - Product contamination microbial [None]
  - Haematochezia [None]

NARRATIVE: CASE EVENT DATE: 20190816
